FAERS Safety Report 6872894-1 (Version None)
Quarter: 2010Q3

REPORT INFORMATION
  Report Type: 
  Country: None (occurrence: None)
  Receive Date: 20100723
  Receipt Date: 20081107
  Transmission Date: 20110219
  Serious: Yes (Other)
  Sender: FDA-Public Use
  Company Number: US-PFIZER INC-2008094154

PATIENT
  Sex: Female
  Weight: 79.545 kg

DRUGS (1)
  1. CHANTIX [Suspect]
     Indication: EX-TOBACCO USER
     Dates: start: 20070601, end: 20081001

REACTIONS (8)
  - DEPRESSION [None]
  - DIABETES MELLITUS [None]
  - FATIGUE [None]
  - GAMBLING [None]
  - INSOMNIA [None]
  - NIGHTMARE [None]
  - POLLAKIURIA [None]
  - THIRST [None]
